FAERS Safety Report 7942810-X (Version None)
Quarter: 2011Q4

REPORT INFORMATION
  Report Type: 
  Country: None (occurrence: None)
  Receive Date: 20111128
  Receipt Date: 20111115
  Transmission Date: 20120403
  Serious: Yes (Hospitalization)
  Sender: FDA-Public Use
  Company Number: JP-CUBIST-2011S1000686

PATIENT
  Age: 89 Year
  Sex: Female

DRUGS (15)
  1. TARGOCID [Concomitant]
     Indication: PYREXIA
     Route: 065
     Dates: start: 20110902, end: 20110907
  2. CIPROFLOXACIN HCL [Concomitant]
     Indication: PRODUCT USED FOR UNKNOWN INDICATION
  3. CUBICIN [Suspect]
     Indication: STAPHYLOCOCCAL SEPSIS
     Route: 042
     Dates: start: 20110922, end: 20111002
  4. HABEKACIN /01069401/ [Concomitant]
     Indication: PYREXIA
     Dates: start: 20110908, end: 20110908
  5. PIPERACILLIN SODIUM [Concomitant]
     Indication: PNEUMONIA
     Dates: start: 20110708
  6. TAZOBACTAM [Concomitant]
     Indication: PRODUCT USED FOR UNKNOWN INDICATION
  7. AMIKACIN [Concomitant]
     Indication: PRODUCT USED FOR UNKNOWN INDICATION
     Dosage: DOSE UNIT:U UNKNOWN
     Route: 065
  8. FOSMICIN /00552502/ [Concomitant]
     Indication: PYREXIA
     Dosage: DOSE UNIT:U UNKNOWN
     Route: 042
     Dates: start: 20110915, end: 20110915
  9. IMMUNE GLOBULIN INTRAVENOUS (HUMAN) [Concomitant]
     Indication: PRODUCT USED FOR UNKNOWN INDICATION
     Route: 065
  10. CUBICIN [Suspect]
     Route: 042
     Dates: start: 20110922, end: 20111002
  11. MEROPENEM [Concomitant]
     Indication: PNEUMONIA
     Dates: start: 20110708
  12. VANCOMYCIN [Concomitant]
     Indication: PYREXIA
     Route: 065
     Dates: start: 20110806, end: 20110812
  13. VANCOMYCIN [Concomitant]
     Route: 065
     Dates: start: 20110829, end: 20110902
  14. VANCOMYCIN [Concomitant]
     Route: 065
     Dates: start: 20110817, end: 20110828
  15. SULPERAZON /00883901/ [Concomitant]
     Indication: PNEUMONIA
     Dates: start: 20110708

REACTIONS (1)
  - DRUG ERUPTION [None]
